FAERS Safety Report 10978179 (Version 1)
Quarter: 2015Q2

REPORT INFORMATION
  Report Type: Spontaneous
  Country: BR (occurrence: BR)
  Receive Date: 20150402
  Receipt Date: 20150402
  Transmission Date: 20150821
  Serious: Yes (Other)
  Sender: FDA-Public Use
  Company Number: BR-PFIZER INC-2015110372

PATIENT
  Sex: Female

DRUGS (1)
  1. ADVIL [Suspect]
     Active Substance: IBUPROFEN
     Indication: MIGRAINE
     Dosage: UNK
     Route: 048
     Dates: start: 20150326

REACTIONS (3)
  - Product physical issue [Unknown]
  - Asphyxia [Unknown]
  - Foreign body [Unknown]

NARRATIVE: CASE EVENT DATE: 20150326
